FAERS Safety Report 7705183-3 (Version None)
Quarter: 2011Q3

REPORT INFORMATION
  Report Type: 
  Country: None (occurrence: None)
  Receive Date: 20110824
  Receipt Date: 20110817
  Transmission Date: 20111222
  Serious: Yes (Other)
  Sender: FDA-Public Use
  Company Number: US-BRISTOL-MYERS SQUIBB COMPANY-15957822

PATIENT
  Age: 32 Year
  Sex: Female

DRUGS (4)
  1. ZYRTEC [Concomitant]
     Route: 048
  2. PREDNISONE TAB [Suspect]
     Indication: RASH
     Dates: start: 20110614
  3. PEPCID [Concomitant]
     Route: 048
  4. KENALOG-10 [Suspect]
     Indication: RASH
     Route: 030
     Dates: start: 20110614

REACTIONS (4)
  - DIZZINESS [None]
  - PAIN [None]
  - INJECTION SITE ATROPHY [None]
  - DYSPNOEA [None]
